FAERS Safety Report 11624469 (Version 1)
Quarter: 2015Q4

REPORT INFORMATION
  Report Type: Other
  Country: DE (occurrence: DE)
  Receive Date: 20151013
  Receipt Date: 20151013
  Transmission Date: 20160304
  Serious: Yes (Other)
  Sender: FDA-Public Use
  Company Number: DE-ASTELLAS-2015US036873

PATIENT
  Sex: Female

DRUGS (2)
  1. VESIKUR [Suspect]
     Active Substance: SOLIFENACIN SUCCINATE
     Indication: INCONTINENCE
     Route: 048
  2. VESIKUR [Suspect]
     Active Substance: SOLIFENACIN SUCCINATE
     Dosage: UNK UNK, UNKNOWN FREQ.
     Route: 067

REACTIONS (14)
  - Dry mouth [Unknown]
  - Dizziness [Unknown]
  - Somnolence [Unknown]
  - Vomiting [Unknown]
  - Cough [Unknown]
  - Respiratory distress [Unknown]
  - Oedema peripheral [Unknown]
  - Vision blurred [Unknown]
  - Incorrect route of drug administration [Unknown]
  - Change of bowel habit [Unknown]
  - Fatigue [Unknown]
  - Vulvovaginal pain [Unknown]
  - Syncope [Unknown]
  - Dysuria [Unknown]
